FAERS Safety Report 9385103 (Version 1)
Quarter: 2013Q3

REPORT INFORMATION
  Report Type: Spontaneous
  Country: US (occurrence: US)
  Receive Date: 20130705
  Receipt Date: 20130705
  Transmission Date: 20140515
  Serious: Yes (Other)
  Sender: FDA-Public Use
  Company Number: US-UCBSA-090423

PATIENT
  Sex: Female

DRUGS (2)
  1. CIMZIA [Suspect]
  2. CIMZIA [Suspect]

REACTIONS (2)
  - Nerve injury [Unknown]
  - Inappropriate schedule of drug administration [Unknown]
